FAERS Safety Report 6904099-X (Version None)
Quarter: 2010Q3

REPORT INFORMATION
  Report Type: 
  Country: None (occurrence: None)
  Receive Date: 20100804
  Receipt Date: 20090318
  Transmission Date: 20110219
  Serious: No
  Sender: FDA-Public Use
  Company Number: US-PFIZER INC-2009185353

PATIENT
  Sex: Female
  Weight: 68.9 kg

DRUGS (5)
  1. LYRICA [Suspect]
     Indication: FIBROMYALGIA
     Dosage: 150 MG, 1X/DAY
     Dates: start: 20070701
  2. CYMBALTA [Concomitant]
     Dosage: 600 MG, 1X/DAY
  3. HYDROCODONE BITARTRATE [Concomitant]
     Dosage: UNK
  4. AMBIEN [Concomitant]
     Dosage: UNK
  5. CHANTIX [Concomitant]
     Dosage: 1 MG, 2X/DAY

REACTIONS (2)
  - ANXIETY [None]
  - PALPITATIONS [None]
